FAERS Safety Report 14202569 (Version 1)
Quarter: 2017Q4

REPORT INFORMATION
  Report Type: Report from Study
  Country: MX (occurrence: MX)
  Receive Date: 20171118
  Receipt Date: 20171118
  Transmission Date: 20180321
  Serious: Yes (Other)
  Sender: FDA-Public Use
  Company Number: MX-ROCHE-2023228

PATIENT
  Age: 8 Year
  Sex: Female

DRUGS (2)
  1. HERCEPTIN [Suspect]
     Active Substance: TRASTUZUMAB
     Indication: HER-2 POSITIVE BREAST CANCER
     Dosage: A MONTHLY FOR A ONE YEAR
     Route: 065
  2. TAMOXIFEN [Concomitant]
     Active Substance: TAMOXIFEN
     Dosage: FOR 5 TEARS, TABLET OF 20 MG
     Route: 048
     Dates: start: 2013, end: 201710

REACTIONS (3)
  - Breast hyperplasia [Recovered/Resolved]
  - Radiation skin injury [Unknown]
  - Off label use [Unknown]

NARRATIVE: CASE EVENT DATE: 2013
